FAERS Safety Report 19475862 (Version 1)
Quarter: 2021Q2

REPORT INFORMATION
  Report Type: Spontaneous
  Country: GB (occurrence: GB)
  Receive Date: 20210630
  Receipt Date: 20210630
  Transmission Date: 20210717
  Serious: Yes (Other)
  Sender: FDA-Public Use
  Company Number: GB-TEVA-2021-GB-1926946

PATIENT
  Age: 26 Year
  Sex: Female
  Weight: 50 kg

DRUGS (3)
  1. PHENOXYMETHYLPENICILLIN [Concomitant]
     Active Substance: PENICILLIN V
     Dosage: 8 DOSAGE FORMS DAILY;
     Dates: start: 20210329, end: 20210405
  2. QUETIAPINE. [Suspect]
     Active Substance: QUETIAPINE
     Dosage: 300MG
     Route: 065
     Dates: start: 20210621
  3. OMEPRAZOLE. [Concomitant]
     Active Substance: OMEPRAZOLE
     Dosage: 1 DOSAGE FORMS DAILY;
     Dates: start: 20210513, end: 20210610

REACTIONS (1)
  - Conversion disorder [Recovered/Resolved]

NARRATIVE: CASE EVENT DATE: 20210621
